FAERS Safety Report 4874169-9 (Version None)
Quarter: 2005Q4

REPORT INFORMATION
  Report Type: 
  Country: None (occurrence: None)
  Receive Date: 20051201
  Receipt Date: 20050808
  Transmission Date: 20060501
  Serious: No
  Sender: FDA-Public Use
  Company Number: 2005PV000985

PATIENT
  Age: 57 Year
  Sex: Male
  Weight: 117.9352 kg

DRUGS (8)
  1. BYETTA [Suspect]
     Indication: DIABETES MELLITUS NON-INSULIN-DEPENDENT
     Dosage: SEE IMAGE
     Route: 058
     Dates: start: 20050615, end: 20050701
  2. BYETTA [Suspect]
     Indication: DIABETES MELLITUS NON-INSULIN-DEPENDENT
     Dosage: SEE IMAGE
     Route: 058
     Dates: start: 20050715, end: 20050821
  3. BYETTA [Suspect]
     Indication: DIABETES MELLITUS NON-INSULIN-DEPENDENT
     Dosage: SEE IMAGE
     Route: 058
     Dates: start: 20050822
  4. LANTUS [Concomitant]
  5. AVANDIA [Concomitant]
  6. GLUCOTROL [Concomitant]
  7. PRECOSE [Concomitant]
  8. NOVOLIN [Concomitant]

REACTIONS (5)
  - BLOOD GLUCOSE INCREASED [None]
  - CIRCUMSTANCE OR INFORMATION CAPABLE OF LEADING TO MEDICATION ERROR [None]
  - DRUG EFFECT DECREASED [None]
  - ERYTHEMA [None]
  - HOT FLUSH [None]
